FAERS Safety Report 18240595 (Version 1)
Quarter: 2020Q3

REPORT INFORMATION
  Report Type: Spontaneous
  Country: US (occurrence: US)
  Receive Date: 20200904
  Receipt Date: 20200904
  Transmission Date: 20201103
  Serious: Yes (Life-Threatening)
  Sender: FDA-Public Use
  Company Number: None

PATIENT
  Age: 58 Year
  Sex: Female
  Weight: 110.7 kg

DRUGS (1)
  1. TRESIBA [Suspect]
     Active Substance: INSULIN DEGLUDEC

REACTIONS (4)
  - Ventricular fibrillation [None]
  - Ventricular extrasystoles [None]
  - Heart rate increased [None]
  - Fatigue [None]

NARRATIVE: CASE EVENT DATE: 20200903
